FAERS Safety Report 11328712 (Version 2)
Quarter: 2015Q3

REPORT INFORMATION
  Report Type: Spontaneous
  Country: JP (occurrence: JP)
  Receive Date: 20150731
  Receipt Date: 20150917
  Transmission Date: 20151125
  Serious: Yes (Hospitalization)
  Sender: FDA-Public Use
  Company Number: JP-ASTRAZENECA-2015SE72993

PATIENT
  Age: 59 Year
  Sex: Male
  Weight: 57 kg

DRUGS (6)
  1. VICTOZA [Concomitant]
     Active Substance: LIRAGLUTIDE
     Route: 058
  2. FORXIGA [Suspect]
     Active Substance: DAPAGLIFLOZIN
     Indication: DIABETES MELLITUS
     Route: 048
     Dates: start: 20150615, end: 20150621
  3. TRESIBA [Concomitant]
     Active Substance: INSULIN DEGLUDEC
     Route: 058
  4. HARNAL [Suspect]
     Active Substance: TAMSULOSIN HYDROCHLORIDE
     Dosage: DOSE UNKNOWN
     Route: 048
     Dates: end: 20150621
  5. HUMALOG [Concomitant]
     Active Substance: INSULIN LISPRO
     Dosage: 8 UNITS IN THE MORNING, 9 UNITS AT NOON AND 8 UNITS IN THE EVENING
     Route: 058
  6. BUP-4 [Suspect]
     Active Substance: PROPIVERINE
     Dosage: DOSE UNKNOWN
     Route: 048
     Dates: end: 20150621

REACTIONS (2)
  - Blood pressure decreased [Recovering/Resolving]
  - Cerebral infarction [Recovering/Resolving]

NARRATIVE: CASE EVENT DATE: 20150621
